FAERS Safety Report 15674140 (Version 2)
Quarter: 2018Q4

REPORT INFORMATION
  Report Type: Spontaneous
  Country: JP (occurrence: JP)
  Receive Date: 20181130
  Receipt Date: 20181205
  Transmission Date: 20190205
  Serious: Yes (Other)
  Sender: FDA-Public Use
  Company Number: JP-ROCHE-2221429

PATIENT
  Age: 4 Year
  Sex: Male

DRUGS (1)
  1. CELLCEPT [Suspect]
     Active Substance: MYCOPHENOLATE MOFETIL\MYCOPHENOLATE MOFETIL HYDROCHLORIDE
     Indication: CHRONIC GRAFT VERSUS HOST DISEASE IN SKIN
     Route: 048

REACTIONS (8)
  - Off label use [Unknown]
  - Encephalopathy [Unknown]
  - Pulmonary alveolar haemorrhage [Unknown]
  - Bacteraemia [Unknown]
  - Pneumonia streptococcal [Unknown]
  - Disseminated intravascular coagulation [Unknown]
  - Purpura fulminans [Unknown]
  - Intentional product use issue [Unknown]
